FAERS Safety Report 8595169-1 (Version None)
Quarter: 2012Q3

REPORT INFORMATION
  Report Type: 
  Country: None (occurrence: None)
  Receive Date: 20120815
  Receipt Date: 20120808
  Transmission Date: 20120928
  Serious: Yes (Other)
  Sender: FDA-Public Use
  Company Number: CH-ASTRAZENECA-2012SE56139

PATIENT
  Age: 4 Year
  Sex: Male

DRUGS (1)
  1. EMLA [Suspect]
     Route: 061
     Dates: start: 20120607, end: 20120607

REACTIONS (4)
  - BRADYCARDIA [None]
  - HYPOTENSION [None]
  - SOMNOLENCE [None]
  - SYNCOPE [None]
